FAERS Safety Report 10071660 (Version 1)
Quarter: 2014Q2

REPORT INFORMATION
  Report Type: Report from Study
  Country: FR (occurrence: FR)
  Receive Date: 20140411
  Receipt Date: 20140411
  Transmission Date: 20141212
  Serious: Yes (Death)
  Sender: FDA-Public Use
  Company Number: FR-ROCHE-1379342

PATIENT
  Age: 67 Year
  Sex: Female
  Weight: 61.5 kg

DRUGS (6)
  1. BEVACIZUMAB [Suspect]
     Indication: BREAST CANCER METASTATIC
     Dosage: LAST DOSE PRIOR TO SAE: 25/MAR/2014?CUMULATIVE DOSE SINCE FIRST ADMINISTRATION: 600MG
     Route: 042
     Dates: start: 20140325
  2. PACLITAXEL [Suspect]
     Indication: BREAST CANCER METASTATIC
     Dosage: LAST DOSE PRIOR TO SAE: 25/MAR/2014?CUMULATIVE DOSE SINCE FIRST ADMINISTRATION: 600MG
     Route: 042
  3. INEXIUM [Concomitant]
  4. FORTIMEL [Concomitant]
  5. METFORMIN [Concomitant]
     Route: 065
  6. CORTANCYL [Concomitant]

REACTIONS (1)
  - Cardiac arrest [Fatal]
